FAERS Safety Report 15941826 (Version 2)
Quarter: 2019Q1

REPORT INFORMATION
  Report Type: Spontaneous
  Country: US (occurrence: US)
  Receive Date: 20190209
  Receipt Date: 20190226
  Transmission Date: 20190417
  Serious: Yes (Other)
  Sender: FDA-Public Use
  Company Number: US-PRINSTON PHARMACEUTICAL INC.-2019PRN00144

PATIENT
  Sex: Male
  Weight: 106.58 kg

DRUGS (11)
  1. METOPROLOL. [Concomitant]
     Active Substance: METOPROLOL
  2. BABY ASPIRIN [Concomitant]
     Active Substance: ASPIRIN
  3. IRBESARTAN AND HYDROCHLOROTHIAZIDE [Suspect]
     Active Substance: HYDROCHLOROTHIAZIDE\IRBESARTAN
     Indication: HYPERTENSION
     Dosage: 300 MG/12.5 MG, 1X/DAY
     Route: 048
     Dates: start: 2009, end: 201901
  4. OMEGA XL VITAMIN [Concomitant]
  5. XIIDRA [Concomitant]
     Active Substance: LIFITEGRAST
  6. UNSPECIFIED OINTMENTS [Concomitant]
  7. ONE-A-DAY NOS [Concomitant]
     Active Substance: MINERALS\VITAMINS
  8. ATORVASTATIN [Concomitant]
     Active Substance: ATORVASTATIN
  9. CLOPIDOGREL [Concomitant]
     Active Substance: CLOPIDOGREL BISULFATE
  10. ZETIA [Concomitant]
     Active Substance: EZETIMIBE
  11. SYSTANE (HYPROMELLOSE 2910 (4000 MPA.S)) [Concomitant]
     Active Substance: HYPROMELLOSE 2910 (4000 MPA.S)

REACTIONS (11)
  - Dyspnoea [Not Recovered/Not Resolved]
  - Tooth loss [Not Recovered/Not Resolved]
  - Lacrimation increased [Not Recovered/Not Resolved]
  - Dry mouth [Not Recovered/Not Resolved]
  - Dry eye [Not Recovered/Not Resolved]
  - Lung disorder [Not Recovered/Not Resolved]
  - Osteonecrosis [Not Recovered/Not Resolved]
  - Neuropathy peripheral [Not Recovered/Not Resolved]
  - Dacryostenosis acquired [Not Recovered/Not Resolved]
  - Skin cancer [Not Recovered/Not Resolved]
  - Large intestine polyp [Recovered/Resolved]

NARRATIVE: CASE EVENT DATE: 2009
